FAERS Safety Report 13111326 (Version 9)
Quarter: 2018Q4

REPORT INFORMATION
  Report Type: Spontaneous
  Country: US (occurrence: US)
  Receive Date: 20170112
  Receipt Date: 20181105
  Transmission Date: 20190204
  Serious: Yes (Hospitalization)
  Sender: FDA-Public Use
  Company Number: US-ACTELION-A-US2017-148216

PATIENT
  Age: 42 Year
  Sex: Female

DRUGS (11)
  1. NAPROXEN. [Concomitant]
     Active Substance: NAPROXEN
  2. AMBIEN [Concomitant]
     Active Substance: ZOLPIDEM TARTRATE
  3. TYLENOL WITH CODEINE [Concomitant]
     Active Substance: ACETAMINOPHEN\CODEINE PHOSPHATE
  4. COLCRYS [Concomitant]
     Active Substance: COLCHICINE
  5. REVATIO [Concomitant]
     Active Substance: SILDENAFIL CITRATE
  6. LASIX [Concomitant]
     Active Substance: FUROSEMIDE
  7. IBUPROFEN. [Concomitant]
     Active Substance: IBUPROFEN
  8. OPSUMIT [Suspect]
     Active Substance: MACITENTAN
     Indication: PULMONARY ARTERIAL HYPERTENSION
     Dosage: 10 MG, QD
     Route: 048
     Dates: start: 20161004
  9. MAGNESIUM [Concomitant]
     Active Substance: MAGNESIUM
  10. POTASSIUM [Concomitant]
     Active Substance: POTASSIUM
  11. ZOFRAN [Concomitant]
     Active Substance: ONDANSETRON HYDROCHLORIDE

REACTIONS (13)
  - Dizziness [Recovered/Resolved]
  - Pulmonary arterial hypertension [Recovered/Resolved]
  - Contusion [Not Recovered/Not Resolved]
  - Joint injury [Unknown]
  - Sinus congestion [Not Recovered/Not Resolved]
  - Condition aggravated [Recovered/Resolved]
  - Cerebrovascular accident [Recovered/Resolved]
  - Vaginal haemorrhage [Recovered/Resolved]
  - Dyspnoea [Recovered/Resolved]
  - Transient ischaemic attack [Unknown]
  - Hypoaesthesia [Not Recovered/Not Resolved]
  - Sinusitis [Not Recovered/Not Resolved]
  - Paraesthesia [Not Recovered/Not Resolved]

NARRATIVE: CASE EVENT DATE: 201611
